FAERS Safety Report 4457049-2 (Version None)
Quarter: 2004Q3

REPORT INFORMATION
  Report Type: 
  Country: None (occurrence: None)
  Receive Date: 20040921
  Receipt Date: 20040908
  Transmission Date: 20050211
  Serious: Yes (Hospitalization)
  Sender: FDA-Public Use
  Company Number: 189397

PATIENT
  Age: 59 Year
  Sex: Female
  Weight: 77.1115 kg

DRUGS (8)
  1. AVONEX [Suspect]
     Indication: MULTIPLE SCLEROSIS
     Dosage: 30 MCG QW IM
     Route: 030
     Dates: start: 20000601, end: 20030801
  2. AVONEX [Suspect]
     Indication: MULTIPLE SCLEROSIS
     Dosage: 30 MCG QW IM
     Route: 030
     Dates: start: 20030801
  3. NEURONTIN [Concomitant]
  4. GLUCOPHAGE ^UNS^ [Concomitant]
  5. DETROL [Concomitant]
  6. OXYBUTYNIN [Concomitant]
  7. IBUPROFEN [Concomitant]
  8. DARVOCET-N 100 [Concomitant]

REACTIONS (17)
  - ALLERGY TO CHEMICALS [None]
  - ARTHRITIS INFECTIVE [None]
  - ARTHROPATHY [None]
  - ASTHENIA [None]
  - BLISTER [None]
  - BLOOD GLUCOSE DECREASED [None]
  - DEHYDRATION [None]
  - FALL [None]
  - GASTROINTESTINAL INFECTION [None]
  - HYPOAESTHESIA [None]
  - JOINT LOCK [None]
  - LACERATION [None]
  - LIGAMENT INJURY [None]
  - MEDICAL DEVICE COMPLICATION [None]
  - STAPHYLOCOCCAL INFECTION [None]
  - STREPTOCOCCAL INFECTION [None]
  - WHEELCHAIR USER [None]
